FAERS Safety Report 5735405-X (Version None)
Quarter: 2008Q2

REPORT INFORMATION
  Report Type: 
  Country: None (occurrence: None)
  Receive Date: 20080508
  Receipt Date: 20080508
  Transmission Date: 20081010
  Serious: No
  Sender: FDA-Public Use
  Company Number: None

PATIENT
  Sex: Female
  Weight: 95.2554 kg

DRUGS (1)
  1. CREST PRO HEALTH P+G [Suspect]
     Dosage: EVERY DAY
     Dates: start: 20071019, end: 20080506

REACTIONS (1)
  - TOOTH DISCOLOURATION [None]
